FAERS Safety Report 18672880 (Version 1)
Quarter: 2020Q4

REPORT INFORMATION
  Report Type: Other
  Country: CA (occurrence: CA)
  Receive Date: 20201229
  Receipt Date: 20201229
  Transmission Date: 20210114
  Serious: Yes (Other)
  Sender: FDA-Public Use
  Company Number: CA-CELLTRION INC.-2020CA034396

PATIENT

DRUGS (8)
  1. HYDROXYCHLOROQUINE [Concomitant]
     Active Substance: HYDROXYCHLOROQUINE
     Route: 065
  2. CELEBREX [Concomitant]
     Active Substance: CELECOXIB
     Route: 065
  3. AZATHIOPRINE. [Concomitant]
     Active Substance: AZATHIOPRINE
     Route: 065
  4. BENADRYL [Concomitant]
     Active Substance: DIPHENHYDRAMINE HYDROCHLORIDE
     Indication: PREMEDICATION
     Dosage: 50 MILLIGRAM
     Route: 048
  5. IRON [Concomitant]
     Active Substance: IRON
     Route: 065
  6. METHYLPREDNISOLONE SODIUM SUCCINATE. [Concomitant]
     Active Substance: METHYLPREDNISOLONE SODIUM SUCCINATE
     Indication: PREMEDICATION
     Dosage: 100 MILLIGRAM
     Route: 042
  7. RITUXIMAB (UNKNOWN) [Suspect]
     Active Substance: RITUXIMAB
     Indication: RHEUMATOID ARTHRITIS
     Dosage: 1000 MILLIGRAM, 1 EVERY 15 DAYS
     Route: 041
  8. TYLENOL [Concomitant]
     Active Substance: ACETAMINOPHEN
     Indication: PREMEDICATION
     Dosage: 650 MILLIGRAM
     Route: 048

REACTIONS (11)
  - Autoimmune hepatitis [Unknown]
  - Joint swelling [Unknown]
  - Sjogren^s syndrome [Unknown]
  - Skin reaction [Unknown]
  - Off label use [Unknown]
  - Headache [Unknown]
  - Inflammation [Unknown]
  - Liver function test increased [Unknown]
  - Thalassaemia [Unknown]
  - Weight decreased [Unknown]
  - Anaemia [Unknown]
